FAERS Safety Report 9674576 (Version 2)
Quarter: 2013Q4

REPORT INFORMATION
  Report Type: Spontaneous
  Country: JP (occurrence: JP)
  Receive Date: 20131107
  Receipt Date: 20131128
  Transmission Date: 20140711
  Serious: Yes (Hospitalization)
  Sender: FDA-Public Use
  Company Number: JP-ASTRAZENECA-2013SE80595

PATIENT
  Sex: Female

DRUGS (8)
  1. OMEPRAL [Suspect]
     Route: 048
  2. HYDROCHLOROTHIAZIDE [Suspect]
  3. TELMISARTAN [Concomitant]
  4. AMLODIPINE [Concomitant]
  5. CARVEDILOL [Concomitant]
  6. VERAPAMIL [Concomitant]
  7. DIGOXIN [Concomitant]
  8. WARFARIN [Concomitant]

REACTIONS (1)
  - Inappropriate antidiuretic hormone secretion [Recovering/Resolving]
